FAERS Safety Report 8439866-7 (Version None)
Quarter: 2012Q2

REPORT INFORMATION
  Report Type: 
  Country: None (occurrence: None)
  Receive Date: 20120615
  Receipt Date: 20120611
  Transmission Date: 20120825
  Serious: Yes (Other)
  Sender: FDA-Public Use
  Company Number: PHHY2012CA007235

PATIENT
  Sex: Female

DRUGS (1)
  1. GILENYA [Suspect]
     Indication: RELAPSING-REMITTING MULTIPLE SCLEROSIS
     Dosage: 0.5 MG, QD
     Route: 048
     Dates: start: 20120123, end: 20120508

REACTIONS (5)
  - VITREOUS DETACHMENT [None]
  - NAUSEA [None]
  - CHEST PAIN [None]
  - VISUAL ACUITY REDUCED [None]
  - FATIGUE [None]
